FAERS Safety Report 9688085 (Version 1)
Quarter: 2013Q4

REPORT INFORMATION
  Report Type: Spontaneous
  Country: RS (occurrence: RS)
  Receive Date: 20131114
  Receipt Date: 20131114
  Transmission Date: 20140711
  Serious: Yes (Hospitalization)
  Sender: FDA-Public Use
  Company Number: RS-MYLANLABS-2013S1025117

PATIENT
  Age: 38 Year
  Sex: Female

DRUGS (2)
  1. VERAPAMIL [Suspect]
     Indication: OVERDOSE
     Route: 048
  2. DIAZEPAM [Suspect]
     Indication: OVERDOSE
     Route: 048

REACTIONS (5)
  - Bradycardia [Recovering/Resolving]
  - Hypotension [Recovered/Resolved]
  - Overdose [Recovering/Resolving]
  - Toxicity to various agents [Recovering/Resolving]
  - Anuria [Unknown]
